FAERS Safety Report 19321821 (Version 3)
Quarter: 2022Q1

REPORT INFORMATION
  Report Type: Report from Study
  Country: US (occurrence: US)
  Receive Date: 20210528
  Receipt Date: 20220301
  Transmission Date: 20220423
  Serious: Yes (Other)
  Sender: FDA-Public Use
  Company Number: US-ABBVIE-21K-163-3923676-00

PATIENT
  Sex: Female
  Weight: 72.640 kg

DRUGS (9)
  1. HUMIRA [Suspect]
     Active Substance: ADALIMUMAB
     Indication: Ankylosing spondylitis
     Dosage: CF
     Route: 058
     Dates: start: 2010, end: 201601
  2. HUMIRA [Suspect]
     Active Substance: ADALIMUMAB
     Indication: Uveitis
     Dosage: CF
     Route: 058
     Dates: start: 201606, end: 20210220
  3. HUMIRA [Suspect]
     Active Substance: ADALIMUMAB
     Indication: Irritable bowel syndrome
     Dosage: CF
     Route: 058
     Dates: start: 20210403
  4. HUMIRA [Suspect]
     Active Substance: ADALIMUMAB
     Indication: Diverticulitis
  5. HUMIRA [Suspect]
     Active Substance: ADALIMUMAB
     Indication: Plantar fasciitis
  6. PFIZER-BIONTECH COVID-19 VACCINE [Suspect]
     Active Substance: TOZINAMERAN
     Indication: COVID-19 immunisation
     Dosage: FIRST DOSE
     Route: 030
     Dates: start: 20210226, end: 20210226
  7. PFIZER-BIONTECH COVID-19 VACCINE [Suspect]
     Active Substance: TOZINAMERAN
     Dosage: SECOND DOSE
     Route: 030
     Dates: start: 20210327, end: 20210327
  8. AMLODIPINE [Concomitant]
     Active Substance: AMLODIPINE BESYLATE
     Indication: Hypertension
  9. LOSARTAN [Concomitant]
     Active Substance: LOSARTAN
     Indication: Hypertension

REACTIONS (21)
  - Spinal fusion surgery [Recovered/Resolved]
  - Tendon rupture [Recovering/Resolving]
  - Carpal tunnel syndrome [Recovering/Resolving]
  - Tendon sheath incision [Recovering/Resolving]
  - Cyst [Recovering/Resolving]
  - Intervertebral disc protrusion [Recovering/Resolving]
  - Temporomandibular joint syndrome [Unknown]
  - Onychomadesis [Unknown]
  - Arthralgia [Not Recovered/Not Resolved]
  - Back pain [Not Recovered/Not Resolved]
  - Fall [Recovering/Resolving]
  - Sinusitis [Recovering/Resolving]
  - Ankylosing spondylitis [Not Recovered/Not Resolved]
  - Illness [Recovered/Resolved]
  - Pyrexia [Recovered/Resolved]
  - Peripheral swelling [Recovered/Resolved with Sequelae]
  - Rash [Recovered/Resolved]
  - Vertigo [Not Recovered/Not Resolved]
  - Headache [Not Recovered/Not Resolved]
  - Chronic sinusitis [Unknown]
  - Dental caries [Unknown]

NARRATIVE: CASE EVENT DATE: 20100101
